FAERS Safety Report 6276274-1 (Version None)
Quarter: 2009Q3

REPORT INFORMATION
  Report Type: 
  Country: None (occurrence: None)
  Receive Date: 20090722
  Receipt Date: 20090715
  Transmission Date: 20100115
  Serious: Yes (Hospitalization)
  Sender: FDA-Public Use
  Company Number: US-JNJFOC-20090706427

PATIENT
  Sex: Female

DRUGS (13)
  1. LEVOFLOXACIN [Suspect]
     Indication: DRUG USE FOR UNKNOWN INDICATION
     Route: 065
  2. SIMCOR [Suspect]
     Dosage: 500/20 MG QHS (5-2)
     Route: 048
  3. SIMCOR [Suspect]
     Route: 048
  4. SIMCOR [Suspect]
     Indication: HIGH DENSITY LIPOPROTEIN DECREASED
     Dosage: 500/20 MG QHS (5-2)
     Route: 048
  5. ANTI-HYPERTENSIVES, UNSPECIFIED [Interacting]
     Indication: DRUG USE FOR UNKNOWN INDICATION
     Route: 065
  6. ALPRAZOLAM [Concomitant]
     Route: 065
  7. DYAZIDE [Concomitant]
     Route: 065
  8. ATENOLOL [Concomitant]
     Route: 065
  9. MULTI-VITAMINS [Concomitant]
     Route: 065
  10. CALCIUM/MAGNESIUM/ZINC [Concomitant]
     Route: 065
  11. NAPROXEN SODIUM [Concomitant]
     Route: 065
  12. EXCEDRIN (ACETYLSALICYLIC ACID, CAFFEINE, SALICYLAMIDE, PARACETAMOL) [Concomitant]
     Route: 065
  13. ACETYLSALICYLIC ACID [Concomitant]
     Route: 048

REACTIONS (4)
  - DRUG INTERACTION [None]
  - HYPERTENSION [None]
  - NAUSEA [None]
  - TEMPERATURE INTOLERANCE [None]
